FAERS Safety Report 14205750 (Version 1)
Quarter: 2017Q4

REPORT INFORMATION
  Report Type: Spontaneous
  Country: US (occurrence: None)
  Receive Date: 20171120
  Receipt Date: 20171120
  Transmission Date: 20180321
  Serious: Yes (Hospitalization, Disabling, Other)
  Sender: FDA-Public Use
  Company Number: None

PATIENT
  Age: 60 Year
  Sex: Female
  Weight: 86.18 kg

DRUGS (13)
  1. CALCIUM [Concomitant]
     Active Substance: CALCIUM
  2. AMANTIDINE [Concomitant]
     Active Substance: AMANTADINE
  3. LISINOPRIL. [Concomitant]
     Active Substance: LISINOPRIL
  4. MULTIVITAMIN [Concomitant]
     Active Substance: VITAMINS
  5. FENTANYL. [Suspect]
     Active Substance: FENTANYL
     Indication: GASTROINTESTINAL DISORDER
  6. BACLOFEN. [Concomitant]
     Active Substance: BACLOFEN
  7. AMPYRA [Concomitant]
     Active Substance: DALFAMPRIDINE
  8. LASIX [Concomitant]
     Active Substance: FUROSEMIDE
  9. CARVEDILOL. [Concomitant]
     Active Substance: CARVEDILOL
  10. OXYBUTYNIN. [Concomitant]
     Active Substance: OXYBUTYNIN CHLORIDE
  11. ATORVASTATIN [Concomitant]
     Active Substance: ATORVASTATIN
  12. ALPHALIPOIC ACID [Concomitant]
  13. ASPIRIN. [Concomitant]
     Active Substance: ASPIRIN

REACTIONS (3)
  - Dysphagia [None]
  - Conversion disorder [None]
  - Pneumonia [None]

NARRATIVE: CASE EVENT DATE: 20160126
